FAERS Safety Report 5465967-1 (Version None)
Quarter: 2007Q3

REPORT INFORMATION
  Report Type: 
  Country: None (occurrence: None)
  Receive Date: 20070924
  Receipt Date: 20070921
  Transmission Date: 20080115
  Serious: Yes (Death)
  Sender: FDA-Public Use
  Company Number: DE-ROXANE LABORATORIES, INC-2007-DE-05569GD

PATIENT
  Age: 81 Year
  Sex: Female

DRUGS (3)
  1. METAMIZOLE [Suspect]
     Indication: ARTHRITIS
  2. METHOTREXATE [Suspect]
     Indication: ARTHRITIS
     Dosage: 15 MG/WEEK
  3. DICLOFENAC [Suspect]
     Indication: ARTHRITIS

REACTIONS (6)
  - AGRANULOCYTOSIS [None]
  - ECCHYMOSIS [None]
  - GASTRITIS HAEMORRHAGIC [None]
  - HAEMORRHAGIC DIATHESIS [None]
  - MUCOSAL HAEMORRHAGE [None]
  - PNEUMONIA [None]
